FAERS Safety Report 25212494 (Version 3)
Quarter: 2025Q4

REPORT INFORMATION
  Report Type: Spontaneous
  Country: EU (occurrence: EU)
  Receive Date: 20250418
  Receipt Date: 20251006
  Transmission Date: 20260118
  Serious: Yes (Other)
  Sender: ROCHE
  Company Number: None

PATIENT
  Age: 76 Year
  Sex: Female
  Weight: 67 kg

DRUGS (21)
  1. BEVACIZUMAB [Suspect]
     Active Substance: BEVACIZUMAB
     Indication: Rectal adenocarcinoma
     Route: 042
     Dates: start: 20241031, end: 20241031
  2. BEVACIZUMAB [Suspect]
     Active Substance: BEVACIZUMAB
     Route: 042
     Dates: start: 20240822, end: 20240822
  3. BEVACIZUMAB [Suspect]
     Active Substance: BEVACIZUMAB
     Route: 042
     Dates: start: 20240704, end: 20240704
  4. BEVACIZUMAB [Suspect]
     Active Substance: BEVACIZUMAB
     Route: 042
     Dates: start: 20250109, end: 20250109
  5. BEVACIZUMAB [Suspect]
     Active Substance: BEVACIZUMAB
     Route: 042
     Dates: start: 20250130, end: 20250130
  6. BEVACIZUMAB [Suspect]
     Active Substance: BEVACIZUMAB
     Route: 042
     Dates: start: 20250220, end: 20250220
  7. BEVACIZUMAB [Suspect]
     Active Substance: BEVACIZUMAB
     Route: 042
     Dates: start: 20250313, end: 20250313
  8. BEVACIZUMAB [Suspect]
     Active Substance: BEVACIZUMAB
     Route: 042
     Dates: start: 20250807, end: 20250807
  9. CAPECITABINE [Suspect]
     Active Substance: CAPECITABINE
     Indication: Rectal adenocarcinoma
     Route: 048
     Dates: start: 20241101, end: 20241114
  10. CAPECITABINE [Suspect]
     Active Substance: CAPECITABINE
     Route: 048
     Dates: start: 20240823, end: 20240905
  11. CAPECITABINE [Suspect]
     Active Substance: CAPECITABINE
     Route: 048
     Dates: start: 20240705, end: 20240718
  12. CAPECITABINE [Suspect]
     Active Substance: CAPECITABINE
     Route: 048
     Dates: start: 20250110, end: 20250123
  13. CAPECITABINE [Suspect]
     Active Substance: CAPECITABINE
     Dosage: ON 13-FEB-2025, SHE RECEIVED MOST RECENT DOSE.
     Route: 048
     Dates: start: 20250131, end: 20250213
  14. CAPECITABINE [Suspect]
     Active Substance: CAPECITABINE
     Dosage: ON 13-FEB-2025, SHE RECEIVED MOST RECENT DOSE.
     Route: 048
     Dates: start: 20250221, end: 20250306
  15. CAPECITABINE [Suspect]
     Active Substance: CAPECITABINE
     Dosage: ON 13-FEB-2025, SHE RECEIVED MOST RECENT DOSE.
     Route: 048
     Dates: start: 20250314, end: 20250327
  16. CAPECITABINE [Suspect]
     Active Substance: CAPECITABINE
     Dosage: ON 13-FEB-2025, SHE RECEIVED MOST RECENT DOSE.
     Route: 048
     Dates: start: 20250808, end: 20250821
  17. OXALIPLATIN [Suspect]
     Active Substance: OXALIPLATIN
     Indication: Rectal adenocarcinoma
     Route: 042
     Dates: start: 20241031, end: 20241031
  18. OXALIPLATIN [Suspect]
     Active Substance: OXALIPLATIN
     Route: 042
     Dates: start: 20240704, end: 20240704
  19. OXALIPLATIN [Suspect]
     Active Substance: OXALIPLATIN
     Route: 042
     Dates: start: 20240822, end: 20240822
  20. OXALIPLATIN [Suspect]
     Active Substance: OXALIPLATIN
     Route: 042
     Dates: start: 20250109, end: 20250109
  21. OXALIPLATIN [Suspect]
     Active Substance: OXALIPLATIN
     Route: 042
     Dates: start: 20250130, end: 20250130

REACTIONS (10)
  - Thrombocytopenia [Recovering/Resolving]
  - Hypokalaemia [Recovering/Resolving]
  - Paraesthesia [Not Recovered/Not Resolved]
  - Nausea [Recovering/Resolving]
  - Asthenia [Recovering/Resolving]
  - Azotaemia [Recovering/Resolving]
  - Haemoglobin decreased [Unknown]
  - Dizziness [Recovering/Resolving]
  - Diarrhoea [Recovered/Resolved]
  - Hypertension [Recovered/Resolved]

NARRATIVE: CASE EVENT DATE: 20240710
